FAERS Safety Report 4798422-2 (Version None)
Quarter: 2005Q4

REPORT INFORMATION
  Report Type: 
  Country: None (occurrence: None)
  Receive Date: 20051013
  Receipt Date: 20050927
  Transmission Date: 20060501
  Serious: Yes (Death, Hospitalization)
  Sender: FDA-Public Use
  Company Number: DL2003138

PATIENT
  Age: 18 Year
  Sex: Female

DRUGS (2)
  1. MIFEPRISTONE TABLETS, 200 MG (DANCO LABS) [Suspect]
     Indication: ABORTION INDUCED
     Dosage: 200 MG, ORAL
     Route: 048
     Dates: start: 20030910
  2. MISOPROSTOL [Suspect]
     Dosage: 800 MCG, VAGINAL
     Route: 067
     Dates: start: 20030911

REACTIONS (13)
  - ABDOMINAL DISTENSION [None]
  - ABORTION INCOMPLETE [None]
  - ACUTE RESPIRATORY DISTRESS SYNDROME [None]
  - ASCITES [None]
  - CONSTIPATION [None]
  - DRUG EXPOSURE DURING PREGNANCY [None]
  - ENDOMETRITIS [None]
  - HYDROTHORAX [None]
  - PERICARDIAL EFFUSION [None]
  - PULMONARY OEDEMA [None]
  - SEPTIC SHOCK [None]
  - UTERINE ABSCESS [None]
  - VOMITING [None]
